FAERS Safety Report 13367533 (Version 1)
Quarter: 2017Q1

REPORT INFORMATION
  Report Type: Spontaneous
  Country: US (occurrence: US)
  Receive Date: 20170324
  Receipt Date: 20170324
  Transmission Date: 20170429
  Serious: No
  Sender: FDA-Public Use
  Company Number: US-ELI_LILLY_AND_COMPANY-US201703005056

PATIENT
  Sex: Male

DRUGS (1)
  1. TALTZ [Suspect]
     Active Substance: IXEKIZUMAB
     Indication: PSORIASIS
     Dosage: 80 MG, EVERY 4/W
     Route: 065
     Dates: start: 20160929

REACTIONS (4)
  - Chest pain [Unknown]
  - Dyspnoea [Unknown]
  - Pulmonary congestion [Unknown]
  - Pneumonia [Unknown]
